FAERS Safety Report 14412280 (Version 1)
Quarter: 2018Q1

REPORT INFORMATION
  Report Type: Spontaneous
  Country: FR (occurrence: FR)
  Receive Date: 20180119
  Receipt Date: 20180119
  Transmission Date: 20180509
  Serious: Yes (Disabling)
  Sender: FDA-Public Use
  Company Number: FR-JNJFOC-20180119973

PATIENT
  Age: 87 Year
  Sex: Male
  Weight: 64 kg

DRUGS (6)
  1. XARELTO [Suspect]
     Active Substance: RIVAROXABAN
     Indication: ATRIAL FIBRILLATION
     Route: 048
     Dates: start: 20171211, end: 20171218
  2. GALVUS [Concomitant]
     Active Substance: VILDAGLIPTIN
     Route: 048
  3. SERESTA [Concomitant]
     Active Substance: OXAZEPAM
     Route: 048
  4. TEMERIT [Concomitant]
     Active Substance: NEBIVOLOL
     Route: 048
  5. METFORMINE [Concomitant]
     Active Substance: METFORMIN HYDROCHLORIDE
     Route: 048
  6. TIAPRIDAL [Concomitant]
     Active Substance: TIAPRIDE HYDROCHLORIDE
     Route: 065

REACTIONS (2)
  - Ischaemic stroke [Not Recovered/Not Resolved]
  - Drug ineffective [Not Recovered/Not Resolved]
